FAERS Safety Report 8101142-X (Version None)
Quarter: 2012Q1

REPORT INFORMATION
  Report Type: 
  Country: None (occurrence: None)
  Receive Date: 20120129
  Receipt Date: 20111012
  Transmission Date: 20120608
  Serious: No
  Sender: FDA-Public Use
  Company Number: US-ABBOTT-11P-163-0863697-00

PATIENT
  Sex: Female
  Weight: 72.64 kg

DRUGS (3)
  1. APRISO [Concomitant]
     Indication: CROHN'S DISEASE
     Dates: end: 20110801
  2. HUMIRA [Suspect]
     Indication: CROHN'S DISEASE
     Route: 058
     Dates: start: 20110723, end: 20110921
  3. IMURAN [Concomitant]
     Indication: CROHN'S DISEASE
     Dates: end: 20110801

REACTIONS (1)
  - WHITE BLOOD CELL COUNT DECREASED [None]
